FAERS Safety Report 20005198 (Version 1)
Quarter: 2021Q4

REPORT INFORMATION
  Report Type: Spontaneous
  Country: FR (occurrence: FR)
  Receive Date: 20211028
  Receipt Date: 20211028
  Transmission Date: 20220303
  Serious: Yes (Hospitalization)
  Sender: FDA-Public Use
  Company Number: FR-AFSSAPS-AVCN20211445

PATIENT
  Age: 29 Year
  Sex: Male

DRUGS (7)
  1. MORPHINE [Suspect]
     Active Substance: MORPHINE
     Indication: Product used for unknown indication
     Dosage: OCCASIONALLY ()
     Route: 065
  2. TRAMADOL [Suspect]
     Active Substance: TRAMADOL
     Indication: Product used for unknown indication
     Dosage: OCCASIONALLY ()
     Route: 065
  3. TOBACCO LEAF [Suspect]
     Active Substance: TOBACCO LEAF
     Indication: Product used for unknown indication
     Dosage: 8 PACKAGES/YEAR ()
     Route: 055
  4. LYSERGIDE [Suspect]
     Active Substance: LYSERGIDE
     Indication: Product used for unknown indication
     Dosage: OCCASIONALLY ()
     Route: 065
  5. ALCOHOL [Suspect]
     Active Substance: ALCOHOL
     Indication: Product used for unknown indication
     Dosage: 3 TO 4 GLASSES ()
     Route: 048
  6. COCAINE [Suspect]
     Active Substance: COCAINE
     Indication: Product used for unknown indication
     Dosage: OCCASIONALLY ()
     Route: 065
  7. CANNABIS SATIVA SUBSP. INDICA TOP [Suspect]
     Active Substance: CANNABIS SATIVA SUBSP. INDICA TOP
     Indication: Product used for unknown indication
     Dosage: REGULARLY ()
     Route: 065

REACTIONS (16)
  - Tachycardia [Recovered/Resolved]
  - Confusional state [Recovered/Resolved]
  - Vomiting [Recovered/Resolved]
  - Hypertension [Recovered/Resolved]
  - Hemiparesis [Not Recovered/Not Resolved]
  - Withdrawal syndrome [Recovered/Resolved]
  - Facial paralysis [Not Recovered/Not Resolved]
  - Agitation [Recovered/Resolved]
  - Hyperhidrosis [Recovered/Resolved]
  - Mydriasis [Recovered/Resolved]
  - Cerebral haematoma [Recovering/Resolving]
  - Speech disorder [Recovering/Resolving]
  - Disorientation [Recovered/Resolved]
  - Drug abuse [Not Recovered/Not Resolved]
  - Hallucination [Recovered/Resolved]
  - Aggression [Recovered/Resolved]

NARRATIVE: CASE EVENT DATE: 20201201
